FAERS Safety Report 15667804 (Version 1)
Quarter: 2018Q4

REPORT INFORMATION
  Report Type: Spontaneous
  Country: US (occurrence: US)
  Receive Date: 20181128
  Receipt Date: 20181128
  Transmission Date: 20190205
  Serious: Yes (Congenital Anomaly, Other)
  Sender: FDA-Public Use
  Company Number: US-MYLANLABS-2018M1087950

PATIENT
  Sex: Male

DRUGS (3)
  1. MISOPROSTOL. [Suspect]
     Active Substance: MISOPROSTOL
     Indication: ABORTION
     Dosage: PRESCRIBED TWICE
     Route: 064
  2. METHOTREXATE. [Suspect]
     Active Substance: METHOTREXATE
     Indication: ABORTION
     Route: 064
  3. MIFEPRISTONE [Suspect]
     Active Substance: MIFEPRISTONE
     Indication: ABORTION
     Route: 064

REACTIONS (10)
  - Spinal deformity [Unknown]
  - Genitalia external ambiguous [Unknown]
  - Congenital hand malformation [Unknown]
  - Skull malformation [Unknown]
  - Foetal growth restriction [Unknown]
  - Cleft lip and palate [Unknown]
  - Fallot^s tetralogy [Unknown]
  - Limb malformation [Unknown]
  - Congenital foot malformation [Unknown]
  - Foetal exposure during pregnancy [Recovered/Resolved]
